FAERS Safety Report 7350344-9 (Version None)
Quarter: 2011Q1

REPORT INFORMATION
  Report Type: 
  Country: None (occurrence: None)
  Receive Date: 20110314
  Receipt Date: 20110302
  Transmission Date: 20110831
  Serious: Yes (Other)
  Sender: FDA-Public Use
  Company Number: IT-BAYER-2011-020490

PATIENT
  Age: 72 Year
  Sex: Male

DRUGS (1)
  1. LEVITRA [Suspect]
     Dosage: 20 MG, OW
     Route: 048
     Dates: start: 20090101

REACTIONS (2)
  - DIPLOPIA [None]
  - TRANSIENT ISCHAEMIC ATTACK [None]
